FAERS Safety Report 8615760 (Version 2)
Quarter: 2012Q4

REPORT INFORMATION
  Report Type: 
  Country: US (occurrence: US)
  Receive Date: 20120614
  Receipt Date: 20120927
  Transmission Date: 20130627
  Serious: Yes (Other)
  Sender: FDA-Public Use
  Company Number: US-AMGEN-USASP2012029261

PATIENT
  Age: 87 Year
  Sex: Female
  Weight: 61.68 kg

DRUGS (2)
  1. PROLIA [Suspect]
     Indication: OSTEOPOROSIS
     Dosage: 60 mg, q6mo
     Route: 058
     Dates: start: 20120112
  2. ASPIRIN [Concomitant]
     Dosage: 8 mg, UNK

REACTIONS (7)
  - Rash [Recovered/Resolved]
  - Cellulitis [Recovered/Resolved]
  - Feeling hot [Unknown]
  - Tenderness [Unknown]
  - Erythema [Unknown]
  - Oedema peripheral [Recovered/Resolved]
  - Pain in extremity [Recovered/Resolved]
